FAERS Safety Report 10007995 (Version 2)
Quarter: 2014Q2

REPORT INFORMATION
  Report Type: Spontaneous
  Country: US (occurrence: US)
  Receive Date: 20140313
  Receipt Date: 20140522
  Transmission Date: 20141212
  Serious: Yes (Other)
  Sender: FDA-Public Use
  Company Number: US-PFIZER INC-2014072764

PATIENT
  Age: 54 Year
  Sex: Female
  Weight: 92.97 kg

DRUGS (1)
  1. EFFEXOR XR [Suspect]
     Indication: DEPRESSION
     Dosage: 75 MG, 1X/DAY
     Route: 048
     Dates: start: 20011115

REACTIONS (2)
  - Cardiac disorder [Not Recovered/Not Resolved]
  - Palpitations [Recovering/Resolving]
